FAERS Safety Report 22617514 (Version 1)
Quarter: 2023Q2

REPORT INFORMATION
  Report Type: Report from Study
  Country: DE (occurrence: DE)
  Receive Date: 20230620
  Receipt Date: 20230620
  Transmission Date: 20230722
  Serious: Yes (Other)
  Sender: FDA-Public Use
  Company Number: DE-CELLTRION INC.-2023DE012119

PATIENT

DRUGS (2)
  1. TRUXIMA [Suspect]
     Active Substance: RITUXIMAB-ABBS
     Indication: Rheumatoid arthritis
  2. METHOTREXATE [Suspect]
     Active Substance: METHOTREXATE
     Indication: Rheumatoid arthritis

REACTIONS (1)
  - Rheumatoid arthritis [Not Recovered/Not Resolved]

NARRATIVE: CASE EVENT DATE: 20220613
